FAERS Safety Report 6746382-7 (Version None)
Quarter: 2010Q2

REPORT INFORMATION
  Report Type: 
  Country: None (occurrence: None)
  Receive Date: 20100528
  Receipt Date: 20100520
  Transmission Date: 20101027
  Serious: Yes (Death, Hospitalization, Other)
  Sender: FDA-Public Use
  Company Number: GB-ROCHE-693890

PATIENT
  Sex: Male
  Weight: 76 kg

DRUGS (4)
  1. XELODA [Suspect]
     Indication: COLORECTAL CANCER
     Dosage: DOSE 1500 NO UNITS PROVIDED TWICE A DAY FOR 2 WEEKS
     Route: 048
     Dates: start: 20100126
  2. XELODA [Suspect]
     Dosage: TWICE A DAY FOR 2 WEEKS
     Route: 048
     Dates: end: 20100205
  3. OXALIPLATIN [Suspect]
     Dosage: DOSE REPORTED AS 200 NO UNITS PROVIDED
     Route: 042
     Dates: start: 20100126
  4. OXALIPLATIN [Suspect]
     Route: 042

REACTIONS (9)
  - DIARRHOEA [None]
  - DIHYDROPYRIMIDINE DEHYDROGENASE DEFICIENCY [None]
  - INFECTION [None]
  - MUCOSAL INFLAMMATION [None]
  - NEUTROPENIA [None]
  - PERINEAL ULCERATION [None]
  - PHARYNGEAL ULCERATION [None]
  - PYREXIA [None]
  - THROMBOCYTOPENIA [None]
